FAERS Safety Report 7200503-0 (Version None)
Quarter: 2010Q4

REPORT INFORMATION
  Report Type: 
  Country: None (occurrence: None)
  Receive Date: 20101228
  Receipt Date: 20101216
  Transmission Date: 20110411
  Serious: Yes (Hospitalization)
  Sender: FDA-Public Use
  Company Number: JP-PFIZER INC-2010124492

PATIENT
  Age: 68 Year
  Sex: Female

DRUGS (2)
  1. LYRICA [Suspect]
     Indication: NEURALGIA
     Dosage: 150 MG / DAY
     Route: 048
     Dates: start: 20100909, end: 20101007
  2. LYRICA [Suspect]
     Dosage: UNK
     Route: 048
     Dates: end: 20101007

REACTIONS (4)
  - BLEPHAROSPASM [None]
  - DIZZINESS [None]
  - ILEUS [None]
  - WEIGHT INCREASED [None]
